FAERS Safety Report 7914352-9 (Version None)
Quarter: 2011Q4

REPORT INFORMATION
  Report Type: 
  Country: None (occurrence: None)
  Receive Date: 20111115
  Receipt Date: 20111109
  Transmission Date: 20120403
  Serious: Yes (Other)
  Sender: FDA-Public Use
  Company Number: US-BAYER-2011-108922

PATIENT
  Age: 59 Year
  Sex: Male
  Weight: 114 kg

DRUGS (3)
  1. ALEVE (CAPLET) [Suspect]
     Indication: HEADACHE
     Dosage: UNK
     Route: 048
     Dates: start: 20111109
  2. CLARITIN-D [Concomitant]
  3. KROGER'S MIGRAINE MEDICINE [Concomitant]

REACTIONS (4)
  - SWOLLEN TONGUE [None]
  - HYPERSENSITIVITY [None]
  - SWELLING FACE [None]
  - ERYTHEMA [None]
